FAERS Safety Report 10885956 (Version 1)
Quarter: 2015Q1

REPORT INFORMATION
  Report Type: Spontaneous
  Country: GB (occurrence: None)
  Receive Date: 20150302
  Receipt Date: 20150302
  Transmission Date: 20150721
  Serious: Yes (Life-Threatening)
  Sender: FDA-Public Use
  Company Number: KAD201502-000333

PATIENT
  Age: 52 Year
  Sex: Male
  Weight: 101 kg

DRUGS (6)
  1. RIBAVIRIN (RIBAVIRIN) [Suspect]
     Active Substance: RIBAVIRIN
     Indication: HEPATITIS C
     Dosage: CAPLET, 3 DOSAGE FORM TWICE DAILY, ORAL
     Route: 048
     Dates: start: 20150112, end: 20150125
  2. EVIPLERA (EMTRICITABINE, TENOFOVIR DISOPROXIL, RILPIVIRINE) [Concomitant]
  3. INTERFERON ALFA NOS [Concomitant]
     Active Substance: INTERFERON ALFA-2A OR INTERFERON ALFA-2B
  4. TELAPREVIR [Concomitant]
     Active Substance: TELAPREVIR
  5. FLUOXETINE HYDROCHLORIDE. [Concomitant]
     Active Substance: FLUOXETINE HYDROCHLORIDE
  6. PARACETAMOL [Concomitant]
     Active Substance: ACETAMINOPHEN

REACTIONS (2)
  - Respiratory distress [None]
  - Hypersensitivity [None]

NARRATIVE: CASE EVENT DATE: 20150120
